FAERS Safety Report 9213498 (Version 1)
Quarter: 2013Q2

REPORT INFORMATION
  Report Type: Spontaneous
  Country: FR (occurrence: FR)
  Receive Date: 20130405
  Receipt Date: 20130405
  Transmission Date: 20140414
  Serious: Yes (Disabling)
  Sender: FDA-Public Use
  Company Number: PHHY2013FR029108

PATIENT
  Age: 61 Year
  Sex: Female

DRUGS (4)
  1. FEMARA [Suspect]
     Indication: BREAST CANCER
     Dosage: UNK UKN, QD
     Route: 048
     Dates: start: 20120706
  2. LECTIL [Concomitant]
     Dosage: 16 MG, UNK
  3. DIACEREIN [Concomitant]
     Dosage: UNK UKN, UNK
  4. ATARAX//HYDROXYZINE [Concomitant]
     Dosage: UNK UKN, UNK

REACTIONS (3)
  - Musculoskeletal stiffness [Not Recovered/Not Resolved]
  - Pain in extremity [Not Recovered/Not Resolved]
  - Hypotonia [Not Recovered/Not Resolved]
